FAERS Safety Report 25769503 (Version 1)
Quarter: 2025Q3

REPORT INFORMATION
  Report Type: Spontaneous
  Country: US (occurrence: US)
  Receive Date: 20250906
  Receipt Date: 20250906
  Transmission Date: 20251021
  Serious: No
  Sender: ALEXION PHARMACEUTICALS
  Company Number: US-AstraZeneca-CH-00943344A

PATIENT
  Sex: Female

DRUGS (3)
  1. TRUQAP [Suspect]
     Active Substance: CAPIVASERTIB
     Route: 065
  2. PHENERGAN [Concomitant]
     Active Substance: PROMETHAZINE HYDROCHLORIDE
     Route: 065
  3. ZOFRAN [Concomitant]
     Active Substance: ONDANSETRON HYDROCHLORIDE
     Route: 065

REACTIONS (6)
  - Nausea [Unknown]
  - Nausea [Unknown]
  - Morning sickness [Unknown]
  - Somnolence [Unknown]
  - Diarrhoea [Unknown]
  - Weight decreased [Unknown]
